FAERS Safety Report 12798715 (Version 1)
Quarter: 2016Q3

REPORT INFORMATION
  Report Type: Spontaneous
  Country: GB (occurrence: GB)
  Receive Date: 20160930
  Receipt Date: 20160930
  Transmission Date: 20161109
  Serious: Yes (Disabling)
  Sender: FDA-Public Use
  Company Number: GB-ACCORD-044497

PATIENT
  Age: 60 Year
  Sex: Female
  Weight: 86 kg

DRUGS (6)
  1. BENDROFLUMETHIAZIDE [Concomitant]
     Active Substance: BENDROFLUMETHIAZIDE
     Dosage: EACH MORNING
     Dates: start: 20160609
  2. ESOMEPRAZOLE/ESOMEPRAZOLE MAGNESIUM/ESOMEPRAZOLE SODIUM [Suspect]
     Active Substance: ESOMEPRAZOLE
     Indication: PRODUCT USED FOR UNKNOWN INDICATION
     Dates: start: 20160609
  3. MEBEVERINE [Concomitant]
     Active Substance: MEBEVERINE
     Dates: start: 20160609
  4. EZETIMIBE. [Concomitant]
     Active Substance: EZETIMIBE
     Dates: start: 20160609
  5. RANITIDINE. [Concomitant]
     Active Substance: RANITIDINE
     Dates: start: 20160915
  6. LIGNOSPAN [Concomitant]
     Dosage: USE AS DIRECTED
     Dates: start: 20160803, end: 20160804

REACTIONS (1)
  - Ataxia [Recovering/Resolving]

NARRATIVE: CASE EVENT DATE: 20160915
